FAERS Safety Report 23660420 (Version 3)
Quarter: 2024Q3

REPORT INFORMATION
  Report Type: Report from Study
  Country: ES (occurrence: ES)
  Receive Date: 20240321
  Receipt Date: 20240703
  Transmission Date: 20241017
  Serious: Yes (Hospitalization)
  Sender: ABBVIE
  Company Number: ES-ABBVIE-5555290

PATIENT
  Sex: Female

DRUGS (15)
  1. CARBIDOPA\LEVODOPA [Suspect]
     Active Substance: CARBIDOPA\LEVODOPA
     Indication: Parkinson^s disease
     Dosage: MORNING DOSE 15, CONTINUOUS DOSE 4.2, EXTRA DOSE 2-4 ML
     Route: 050
     Dates: start: 20211216, end: 20221114
  2. CARBIDOPA\LEVODOPA [Suspect]
     Active Substance: CARBIDOPA\LEVODOPA
     Dosage: MORNING DOSE 15, CONTINUOUS DOSE 4.6, EXTRA DOSE 4 ML
     Route: 050
     Dates: start: 202302
  3. CARBIDOPA\LEVODOPA [Suspect]
     Active Substance: CARBIDOPA\LEVODOPA
     Dosage: MORNING DOSE 15, CONTINUOUS DOSE 4.6, EXTRA DOSE 4 ML
     Route: 050
     Dates: start: 20221114, end: 202302
  4. FUROSEMIDE [Concomitant]
     Active Substance: FUROSEMIDE
     Indication: Cardiac failure congestive
     Dosage: START DATE TEXT: PRIOR TO THE START OF THERAPY?STOP DATE TEXT:  UNTIL 2022 - 2023
     Route: 048
  5. AMLODIPINE [Concomitant]
     Active Substance: AMLODIPINE BESYLATE
     Indication: Hypertension
     Dosage: START DATE TEXT: PRIOR TO THE START OF THERAPY
     Route: 048
     Dates: end: 2023
  6. VENLAFAXINA RETARD STADA [Concomitant]
     Indication: Anxiety
     Dosage: START DATE TEXT: PRIOR TO START OF TREATMENT
     Route: 048
  7. CALCIFEDIOL [Concomitant]
     Active Substance: CALCIFEDIOL
     Indication: Vitamin supplementation
     Dosage: START DATE TEXT: PRIOR TO THE START OF THERAPY
     Route: 048
  8. OMEPRAZOLE [Concomitant]
     Active Substance: OMEPRAZOLE
     Indication: Gastrointestinal disorder prophylaxis
     Dosage: START DATE TEXT: PRIOR TO THE START OF THERAPY
     Route: 048
  9. JARDIANCE [Concomitant]
     Active Substance: EMPAGLIFLOZIN
     Indication: Cardiac failure congestive
     Dosage: START DATE TEXT: 2022-2023
     Route: 048
  10. CLORAZEPATE DIPOTASSIUM [Concomitant]
     Active Substance: CLORAZEPATE DIPOTASSIUM
     Indication: Anxiety
     Dosage: START DATE TEXT: BEFORE START OF DUODOPA
     Route: 048
  11. ELIQUIS [Concomitant]
     Active Substance: APIXABAN
     Indication: Anticoagulant therapy
     Dosage: START DATE TEXT: PRIOR TO THE START OF THERAPY
     Route: 048
  12. BISOPROLOL [Concomitant]
     Active Substance: BISOPROLOL\BISOPROLOL FUMARATE
     Indication: Arrhythmia prophylaxis
     Route: 048
     Dates: start: 2022
  13. HYDROXOCOBALAMIN\PYRIDOXINE HYDROCHLORIDE\THIAMINE HYDROCHLORIDE [Concomitant]
     Active Substance: HYDROXOCOBALAMIN\PYRIDOXINE HYDROCHLORIDE\THIAMINE HYDROCHLORIDE
     Indication: Vitamin supplementation
     Dosage: MONDAY TO FRIDAY?START DATE TEXT: PRIOR TO THE START OF THERAPY
  14. SYMBICORT [Concomitant]
     Active Substance: BUDESONIDE\FORMOTEROL FUMARATE DIHYDRATE
     Indication: Product used for unknown indication
     Dosage: DOSE 160/4.5
     Route: 055
     Dates: start: 2022
  15. SERETIDE [Concomitant]
     Active Substance: FLUTICASONE PROPIONATE\SALMETEROL XINAFOATE
     Indication: Asthma
     Dosage: DOSE 50/250 MCG?START DATE TEXT: BEFORE START OF DUODOPA?STOP DATE TEXT: UNTIL 2022-2023
     Route: 055

REACTIONS (10)
  - Head injury [Recovered/Resolved]
  - Fall [Recovered/Resolved]
  - Nightmare [Recovered/Resolved]
  - Abnormal dreams [Unknown]
  - Decreased appetite [Recovering/Resolving]
  - Abnormal dreams [Unknown]
  - Stoma site haemorrhage [Unknown]
  - Fall [Recovered/Resolved]
  - Fall [Recovering/Resolving]
  - Food aversion [Not Recovered/Not Resolved]

NARRATIVE: CASE EVENT DATE: 20240101
